FAERS Safety Report 6336418-X (Version None)
Quarter: 2009Q3

REPORT INFORMATION
  Report Type: 
  Country: None (occurrence: None)
  Receive Date: 20090831
  Receipt Date: 20090831
  Transmission Date: 20100115
  Serious: No
  Sender: FDA-Public Use
  Company Number: None

PATIENT
  Sex: Female
  Weight: 15.5 kg

DRUGS (1)
  1. GAMMAGARD [Suspect]
     Indication: KAWASAKI'S DISEASE
     Dosage: 31 GM X1 IV DRIP
     Route: 041
     Dates: start: 20090308, end: 20090308

REACTIONS (6)
  - BODY TEMPERATURE INCREASED [None]
  - CHEILITIS [None]
  - DRUG RESISTANCE [None]
  - OEDEMA PERIPHERAL [None]
  - RASH [None]
  - TONGUE DISORDER [None]
